FAERS Safety Report 15309214 (Version 4)
Quarter: 2018Q4

REPORT INFORMATION
  Report Type: Spontaneous
  Country: RO (occurrence: RO)
  Receive Date: 20180823
  Receipt Date: 20180912
  Transmission Date: 20190204
  Serious: Yes (Other)
  Sender: FDA-Public Use
  Company Number: RO-AUROBINDO-AUR-APL-2018-042892

PATIENT
  Age: 74 Year
  Sex: Male

DRUGS (3)
  1. ROSUVASTATIN FILM-COATED TABLET [Suspect]
     Active Substance: ROSUVASTATIN CALCIUM
     Indication: BLOOD CHOLESTEROL INCREASED
     Dosage: 5 MG, QD
     Route: 048
  2. NEOSTIGMINE                        /00045902/ [Suspect]
     Active Substance: NEOSTIGMINE BROMIDE
     Indication: MYASTHENIA GRAVIS
     Dosage: 15 MG, TID
     Route: 065
  3. PYRIDOSTIGMINE [Suspect]
     Active Substance: PYRIDOSTIGMINE
     Indication: MYASTHENIA GRAVIS
     Dosage: 60 MG, TID
     Route: 065

REACTIONS (7)
  - Cholinergic syndrome [Unknown]
  - Nausea [Unknown]
  - Abdominal pain upper [Unknown]
  - Condition aggravated [Unknown]
  - Myasthenia gravis [Recovering/Resolving]
  - Intentional product use issue [Unknown]
  - Myopathy [Unknown]

NARRATIVE: CASE EVENT DATE: 2018
